FAERS Safety Report 5403603-0 (Version None)
Quarter: 2007Q3

REPORT INFORMATION
  Report Type: 
  Country: None (occurrence: None)
  Receive Date: 20070802
  Receipt Date: 20070727
  Transmission Date: 20080115
  Serious: Yes (Hospitalization)
  Sender: FDA-Public Use
  Company Number: PHEH2007US09905

PATIENT
  Age: 15 Year
  Sex: Male
  Weight: 54.421 kg

DRUGS (4)
  1. TEGRETOL [Suspect]
     Dosage: 200 MG, BID
     Dates: start: 20070622, end: 20070627
  2. TEGRETOL [Suspect]
     Dosage: 1100 MG, QD
     Dates: end: 20070621
  3. TEGRETOL [Suspect]
     Dates: end: 20070630
  4. GEODON [Suspect]

REACTIONS (11)
  - ACCIDENTAL OVERDOSE [None]
  - DIARRHOEA [None]
  - GAIT DISTURBANCE [None]
  - GRAND MAL CONVULSION [None]
  - HALLUCINATION [None]
  - MENTAL STATUS CHANGES [None]
  - MYDRIASIS [None]
  - NEUROLEPTIC MALIGNANT SYNDROME [None]
  - THERAPEUTIC AGENT TOXICITY [None]
  - TREMOR [None]
  - VOMITING [None]
